FAERS Safety Report 14893287 (Version 1)
Quarter: 2018Q2

REPORT INFORMATION
  Report Type: Report from Study
  Country: CA (occurrence: CA)
  Receive Date: 20180514
  Receipt Date: 20180514
  Transmission Date: 20180711
  Serious: No
  Sender: FDA-Public Use
  Company Number: CA-HLSUS-2018-CA-000631

PATIENT
  Sex: Female

DRUGS (3)
  1. DIVALPROEX [Concomitant]
     Active Substance: DIVALPROEX SODIUM
     Dosage: 750 MG
     Route: 048
     Dates: start: 2017
  2. CLOZARIL [Suspect]
     Active Substance: CLOZAPINE
     Dosage: 150 MG REDUCED TO 25 MG OVER SEVERAL MONTH
     Route: 048
     Dates: start: 19990401, end: 201805
  3. ABILIFY [Concomitant]
     Active Substance: ARIPIPRAZOLE
     Dosage: 5 MG
     Route: 048

REACTIONS (4)
  - Weight increased [Recovered/Resolved]
  - Adverse drug reaction [Unknown]
  - Schizophrenia [Unknown]
  - Drug ineffective [Unknown]
